FAERS Safety Report 6192029-0 (Version None)
Quarter: 2009Q2

REPORT INFORMATION
  Report Type: 
  Country: None (occurrence: None)
  Receive Date: 20090515
  Receipt Date: 20090507
  Transmission Date: 20091009
  Serious: Yes (Hospitalization)
  Sender: FDA-Public Use
  Company Number: ES-MERCK-0905ESP00015

PATIENT
  Age: 14 Year
  Sex: Female

DRUGS (4)
  1. SINGULAIR [Suspect]
     Indication: ASTHMA
     Route: 048
     Dates: start: 20081201, end: 20090401
  2. FLUTICASONE PROPIONATE AND SALMETEROL XINAFOATE [Concomitant]
     Route: 065
  3. ALBUTEROL [Concomitant]
     Route: 065
  4. PREDNISONE [Concomitant]
     Route: 065

REACTIONS (3)
  - ASTHMATIC CRISIS [None]
  - CUTANEOUS VASCULITIS [None]
  - OVERDOSE [None]
